FAERS Safety Report 7375351-1 (Version None)
Quarter: 2011Q1

REPORT INFORMATION
  Report Type: 
  Country: None (occurrence: None)
  Receive Date: 20110325
  Receipt Date: 20110317
  Transmission Date: 20110831
  Serious: Yes (Other)
  Sender: FDA-Public Use
  Company Number: US-B.I. PHARMACEUTICALS,INC./RIDGEFIELD-2011-BP-08756BP

PATIENT

DRUGS (1)
  1. PRADAXA [Suspect]

REACTIONS (3)
  - PHARYNGEAL OEDEMA [None]
  - THROAT IRRITATION [None]
  - RASH [None]
